FAERS Safety Report 6091031-7 (Version None)
Quarter: 2009Q1

REPORT INFORMATION
  Report Type: 
  Country: None (occurrence: None)
  Receive Date: 20090225
  Receipt Date: 20090218
  Transmission Date: 20090719
  Serious: Yes (Death, Hospitalization, Other)
  Sender: FDA-Public Use
  Company Number: PHHY2009JP06112

PATIENT
  Age: 27 Year
  Sex: Male

DRUGS (1)
  1. GLEEVEC [Suspect]
     Indication: GASTROINTESTINAL STROMAL TUMOUR
     Dosage: UNK
     Route: 048
     Dates: start: 20070101

REACTIONS (7)
  - ACUTE RESPIRATORY FAILURE [None]
  - ASCITES [None]
  - CARDIO-RESPIRATORY ARREST [None]
  - GAIT DISTURBANCE [None]
  - NEOPLASM PROGRESSION [None]
  - OEDEMA PERIPHERAL [None]
  - PLEURAL EFFUSION [None]
